FAERS Safety Report 25441728 (Version 2)
Quarter: 2025Q2

REPORT INFORMATION
  Report Type: Report from Study
  Country: US (occurrence: US)
  Receive Date: 20250616
  Receipt Date: 20250626
  Transmission Date: 20250716
  Serious: Yes (Other)
  Sender: ABBVIE
  Company Number: US-ABBVIE-6324782

PATIENT
  Age: 53 Year
  Sex: Female

DRUGS (1)
  1. RINVOQ [Suspect]
     Active Substance: UPADACITINIB
     Indication: Rheumatoid arthritis
     Route: 048
     Dates: start: 20250425

REACTIONS (5)
  - Graft infection [Not Recovered/Not Resolved]
  - Implant site infection [Not Recovered/Not Resolved]
  - Ear infection [Not Recovered/Not Resolved]
  - Skin laceration [Unknown]
  - Wound infection [Unknown]

NARRATIVE: CASE EVENT DATE: 20250101
